FAERS Safety Report 8215423-2 (Version None)
Quarter: 2012Q1

REPORT INFORMATION
  Report Type: 
  Country: None (occurrence: None)
  Receive Date: 20120314
  Receipt Date: 20120228
  Transmission Date: 20120608
  Serious: Yes (Hospitalization)
  Sender: FDA-Public Use
  Company Number: 12-158

PATIENT
  Age: 73 Year
  Sex: Female

DRUGS (3)
  1. GAVISCON [Concomitant]
  2. IBUPROFEN [Suspect]
     Indication: ARTHRITIS
     Dosage: 400MG /BID / ORAL
     Route: 048
     Dates: start: 20120101, end: 20120211
  3. ACETAMINOPHEN [Concomitant]

REACTIONS (2)
  - GASTRIC ULCER HAEMORRHAGE [None]
  - HAEMOGLOBIN DECREASED [None]
